FAERS Safety Report 7298961-9 (Version None)
Quarter: 2011Q1

REPORT INFORMATION
  Report Type: 
  Country: None (occurrence: None)
  Receive Date: 20110217
  Receipt Date: 20110208
  Transmission Date: 20110831
  Serious: Yes (Other)
  Sender: FDA-Public Use
  Company Number: DE-ROCHE-760244

PATIENT
  Sex: Female

DRUGS (1)
  1. ROACTEMRA [Suspect]
     Indication: RHEUMATOID ARTHRITIS
     Route: 042
     Dates: start: 20110202

REACTIONS (5)
  - GAIT DISTURBANCE [None]
  - DIZZINESS [None]
  - MEMORY IMPAIRMENT [None]
  - APHASIA [None]
  - HEADACHE [None]
